FAERS Safety Report 8341915-1 (Version None)
Quarter: 2012Q2

REPORT INFORMATION
  Report Type: 
  Country: None (occurrence: None)
  Receive Date: 20120507
  Receipt Date: 20120425
  Transmission Date: 20120825
  Serious: Yes (Hospitalization)
  Sender: FDA-Public Use
  Company Number: DE-BAXTER-2012BAX003942

PATIENT
  Age: 57 Year
  Sex: Female

DRUGS (5)
  1. PREDNISONE TAB [Concomitant]
     Route: 065
  2. CYCLOPHOSPHAMIDE [Suspect]
     Route: 042
     Dates: start: 20120416
  3. EPIRUBICIN [Suspect]
     Route: 065
     Dates: start: 20120416
  4. MESNA [Concomitant]
     Route: 065
     Dates: start: 20120416
  5. HYDROXYCHLOROQUINE [Concomitant]
     Route: 065

REACTIONS (2)
  - HYPONATRAEMIA [None]
  - COMA [None]
